FAERS Safety Report 6975926-5 (Version None)
Quarter: 2010Q3

REPORT INFORMATION
  Report Type: 
  Country: None (occurrence: None)
  Receive Date: 20100910
  Receipt Date: 20100904
  Transmission Date: 20110219
  Serious: Yes (Death, Other)
  Sender: FDA-Public Use
  Company Number: PHHY2010ZA59201

PATIENT
  Sex: Female

DRUGS (3)
  1. GLEEVEC [Suspect]
     Dosage: UNK
     Dates: start: 20081001
  2. HYDREA [Concomitant]
     Dosage: UNK
  3. BUSULFAN [Concomitant]
     Dosage: UNK

REACTIONS (4)
  - DEATH [None]
  - GENE MUTATION IDENTIFICATION TEST POSITIVE [None]
  - NO THERAPEUTIC RESPONSE [None]
  - THERAPEUTIC RESPONSE DECREASED [None]
